FAERS Safety Report 18806110 (Version 1)
Quarter: 2021Q1

REPORT INFORMATION
  Report Type: Spontaneous
  Country: GB (occurrence: GB)
  Receive Date: 20210128
  Receipt Date: 20210128
  Transmission Date: 20210419
  Serious: Yes (Other)
  Sender: FDA-Public Use
  Company Number: GB-ALLERGAN-2104419US

PATIENT
  Sex: Female
  Weight: 51.25 kg

DRUGS (11)
  1. COLECALCIFEROL [Concomitant]
     Active Substance: CHOLECALCIFEROL
  2. QUININE SULPHATE [Concomitant]
     Active Substance: QUININE SULFATE
  3. EZETIMIBE. [Concomitant]
     Active Substance: EZETIMIBE
  4. GLUCOSAMINE HYDROCHLORIDE [Concomitant]
     Active Substance: GLUCOSAMINE HYDROCHLORIDE
  5. NITROGLYCERIN ? BP [Suspect]
     Active Substance: NITROGLYCERIN
     Indication: ANAL FISSURE
     Dosage: 2.5 CM EVERY 12 HOURS
     Route: 061
     Dates: start: 20210112, end: 20210113
  6. INSULIN ASPART [Concomitant]
     Active Substance: INSULIN ASPART
  7. NITROFURANTOIN. [Concomitant]
     Active Substance: NITROFURANTOIN
  8. GLUCOSAMINE HYDROCHLORIDE [Concomitant]
     Active Substance: GLUCOSAMINE HYDROCHLORIDE
  9. LEVOTHYROXINE TEVA [Concomitant]
     Active Substance: LEVOTHYROXINE
  10. VITAMIN C [Concomitant]
     Active Substance: ASCORBIC ACID
  11. FENOFIBRATE. [Concomitant]
     Active Substance: FENOFIBRATE

REACTIONS (6)
  - Anal incontinence [Recovering/Resolving]
  - Headache [Unknown]
  - Hyperhidrosis [Unknown]
  - Tremor [Unknown]
  - Dizziness [Unknown]
  - Asthenia [Unknown]

NARRATIVE: CASE EVENT DATE: 2021
